FAERS Safety Report 16336775 (Version 1)
Quarter: 2019Q2

REPORT INFORMATION
  Report Type: Spontaneous
  Country: US (occurrence: US)
  Receive Date: 20190520
  Receipt Date: 20190520
  Transmission Date: 20190711
  Serious: Yes (Hospitalization)
  Sender: FDA-Public Use
  Company Number: None

PATIENT
  Age: 62 Year
  Sex: Female

DRUGS (3)
  1. MYFORTIC [Suspect]
     Active Substance: MYCOPHENOLATE SODIUM
     Indication: GRANULOMA
     Route: 048
     Dates: start: 20170116
  2. GABAPENTIN 300MG [Concomitant]
     Active Substance: GABAPENTIN
  3. CLONAZEPAM 0.5MG [Concomitant]
     Active Substance: CLONAZEPAM

REACTIONS (2)
  - Dizziness [None]
  - Middle ear effusion [None]

NARRATIVE: CASE EVENT DATE: 20190517
